FAERS Safety Report 18560211 (Version 2)
Quarter: 2020Q4

REPORT INFORMATION
  Report Type: Report from Study
  Country: DE (occurrence: DE)
  Receive Date: 20201130
  Receipt Date: 20201219
  Transmission Date: 20210114
  Serious: Yes (Hospitalization)
  Sender: FDA-Public Use
  Company Number: DE-TAKEDA-2020TUS051893

PATIENT
  Age: 19 Year
  Sex: Male
  Weight: 101 kg

DRUGS (4)
  1. TEDUGLUTIDE [Suspect]
     Active Substance: TEDUGLUTIDE
     Indication: CROHN^S DISEASE
     Dosage: 5 MILLIGRAM, QD
     Route: 058
     Dates: start: 20200602, end: 20201110
  2. TEDUGLUTIDE [Suspect]
     Active Substance: TEDUGLUTIDE
     Indication: CROHN^S DISEASE
     Dosage: 5 MILLIGRAM, QD
     Route: 058
     Dates: start: 20200602, end: 20201110
  3. TEDUGLUTIDE [Suspect]
     Active Substance: TEDUGLUTIDE
     Indication: CROHN^S DISEASE
     Dosage: 5 MILLIGRAM, QD
     Route: 058
     Dates: start: 20200602, end: 20201110
  4. TEDUGLUTIDE [Suspect]
     Active Substance: TEDUGLUTIDE
     Indication: CROHN^S DISEASE
     Dosage: 5 MILLIGRAM, QD
     Route: 058
     Dates: start: 20200602, end: 20201110

REACTIONS (3)
  - Fistula repair [Recovering/Resolving]
  - Ileostomy closure [Recovering/Resolving]
  - Stoma site inflammation [Unknown]

NARRATIVE: CASE EVENT DATE: 20201113
